FAERS Safety Report 19570895 (Version 3)
Quarter: 2022Q1

REPORT INFORMATION
  Report Type: Spontaneous
  Country: US (occurrence: US)
  Receive Date: 20210716
  Receipt Date: 20220314
  Transmission Date: 20220423
  Serious: No
  Sender: FDA-Public Use
  Company Number: US-PFIZER INC-2021584610

PATIENT
  Age: 56 Year
  Sex: Female
  Weight: 99.79 kg

DRUGS (3)
  1. EUCRISA [Suspect]
     Active Substance: CRISABOROLE
     Indication: Eczema
     Dosage: UNK (APPLY DOING TO ECZEMA ON FEET)
  2. EUCRISA [Suspect]
     Active Substance: CRISABOROLE
     Indication: Pustular psoriasis
     Dosage: 2 %, DAILY AS NEEDED FOR ECZEMA
  3. EUCRISA [Suspect]
     Active Substance: CRISABOROLE
     Dosage: 60G TUBE

REACTIONS (4)
  - Therapeutic product effect decreased [Unknown]
  - Gait disturbance [Unknown]
  - Expired product administered [Unknown]
  - Rash [Unknown]

NARRATIVE: CASE EVENT DATE: 20190101
